FAERS Safety Report 6760811-4 (Version None)
Quarter: 2010Q2

REPORT INFORMATION
  Report Type: 
  Country: None (occurrence: None)
  Receive Date: 20100604
  Receipt Date: 20100526
  Transmission Date: 20101027
  Serious: Yes (Other)
  Sender: FDA-Public Use
  Company Number: 20108863

PATIENT
  Sex: Female

DRUGS (4)
  1. LIORESAL [Suspect]
     Indication: MUSCLE SPASTICITY
     Dosage: MCG, DAILY, INTRATHECAL
     Route: 037
  2. PAIN MEDICATIONS [Concomitant]
  3. ANTIDEPRESSANTS [Concomitant]
  4. ORAL BACLOFEN [Concomitant]

REACTIONS (9)
  - DYSPNOEA [None]
  - LETHARGY [None]
  - MUSCLE RIGIDITY [None]
  - MUSCLE SPASMS [None]
  - MUSCLE SPASTICITY [None]
  - MUSCULOSKELETAL STIFFNESS [None]
  - NO THERAPEUTIC RESPONSE [None]
  - SOMNOLENCE [None]
  - WITHDRAWAL SYNDROME [None]
